FAERS Safety Report 23243100 (Version 1)
Quarter: 2023Q4

REPORT INFORMATION
  Report Type: Spontaneous
  Country: US (occurrence: US)
  Receive Date: 20231130
  Receipt Date: 20231130
  Transmission Date: 20240110
  Serious: Yes (Other)
  Sender: FDA-Public Use
  Company Number: US-STRIDES ARCOLAB LIMITED-2023SP016632

PATIENT
  Age: 6 Year
  Sex: Male

DRUGS (12)
  1. FUROSEMIDE [Suspect]
     Active Substance: FUROSEMIDE
     Indication: Nephrotic syndrome
     Dosage: UNK
     Route: 065
  2. FUROSEMIDE [Suspect]
     Active Substance: FUROSEMIDE
     Indication: Focal segmental glomerulosclerosis
  3. PREDNISOLONE [Suspect]
     Active Substance: PREDNISOLONE
     Indication: Nephrotic syndrome
     Dosage: 2 MILLIGRAM/KILOGRAM DAILY
     Route: 065
  4. PREDNISOLONE [Suspect]
     Active Substance: PREDNISOLONE
     Indication: Focal segmental glomerulosclerosis
  5. ALBUMIN HUMAN [Suspect]
     Active Substance: ALBUMIN HUMAN
     Indication: Nephrotic syndrome
     Dosage: UNK
     Route: 065
  6. ALBUMIN HUMAN [Suspect]
     Active Substance: ALBUMIN HUMAN
     Indication: Focal segmental glomerulosclerosis
  7. PIOGLITAZONE [Suspect]
     Active Substance: PIOGLITAZONE
     Indication: Nephrotic syndrome
     Dosage: 7.5 MILLIGRAM DAILY
     Route: 048
  8. PIOGLITAZONE [Suspect]
     Active Substance: PIOGLITAZONE
     Indication: Focal segmental glomerulosclerosis
  9. RITUXIMAB [Suspect]
     Active Substance: RITUXIMAB
     Indication: Nephrotic syndrome
     Dosage: 375 MILLIGRAM/SQ. METER (ADMINISTERED TWO DOSES OF RITUXIMAB 375 MG/M 2 /DOSE 8 DAYS APART)
     Route: 065
  10. RITUXIMAB [Suspect]
     Active Substance: RITUXIMAB
     Indication: Focal segmental glomerulosclerosis
  11. PRAVASTATIN [Suspect]
     Active Substance: PRAVASTATIN
     Indication: Nephrotic syndrome
     Dosage: 20 MILLIGRAM (DAILY)
     Route: 048
  12. PRAVASTATIN [Suspect]
     Active Substance: PRAVASTATIN
     Indication: Focal segmental glomerulosclerosis

REACTIONS (3)
  - Condition aggravated [Unknown]
  - Drug ineffective [Unknown]
  - Off label use [Unknown]
